FAERS Safety Report 15552051 (Version 4)
Quarter: 2018Q4

REPORT INFORMATION
  Report Type: Spontaneous
  Country: IE (occurrence: IE)
  Receive Date: 20181025
  Receipt Date: 20181205
  Transmission Date: 20190205
  Serious: Yes (Other)
  Sender: FDA-Public Use
  Company Number: IE-GILEAD-2018-0370547

PATIENT
  Age: 42 Year
  Sex: Male
  Weight: 50 kg

DRUGS (2)
  1. METHADONE [METHADONE HYDROCHLORIDE] [Concomitant]
     Indication: DRUG ABUSE
     Dosage: 25 ML
  2. VOSEVI [Suspect]
     Active Substance: SOFOSBUVIR\VELPATASVIR\VOXILAPREVIR
     Indication: CHRONIC HEPATITIS C
     Dosage: 1 DF, QD
     Route: 048
     Dates: start: 20180926

REACTIONS (1)
  - Muscle spasms [Recovered/Resolved]

NARRATIVE: CASE EVENT DATE: 20181005
